FAERS Safety Report 24761628 (Version 2)
Quarter: 2024Q4

REPORT INFORMATION
  Report Type: Spontaneous
  Country: CN (occurrence: CN)
  Receive Date: 20241220
  Receipt Date: 20241230
  Transmission Date: 20250115
  Serious: Yes (Hospitalization, Other)
  Sender: MERCK
  Company Number: CN-009507513-2412CHN005172

PATIENT
  Age: 60 Year
  Sex: Male
  Weight: 60 kg

DRUGS (4)
  1. CILASTATIN SODIUM\IMIPENEM [Suspect]
     Active Substance: CILASTATIN SODIUM\IMIPENEM
     Indication: Pneumonia
     Dosage: 1 GRAM, Q8H
     Route: 041
     Dates: start: 20241201, end: 20241209
  2. PIPERACILLIN SODIUM\SULBACTAM SODIUM [Suspect]
     Active Substance: PIPERACILLIN SODIUM\SULBACTAM SODIUM
     Indication: Pneumonia
     Dosage: 3 GRAM, Q8H
     Route: 041
     Dates: start: 20241127, end: 20241130
  3. SODIUM CHLORIDE;ZINC GLUCONATE [Concomitant]
     Indication: Medication dilution
     Dosage: 50 MILLILITER, Q8H
     Route: 041
     Dates: start: 20241127, end: 20241130
  4. SODIUM CHLORIDE;ZINC GLUCONATE [Concomitant]
     Dosage: 100 MILLILITER, Q8H
     Route: 041
     Dates: start: 20241201, end: 20241209

REACTIONS (2)
  - Hypernatraemia [Unknown]
  - Acute myocardial infarction [Unknown]

NARRATIVE: CASE EVENT DATE: 20241127
